FAERS Safety Report 7197048-3 (Version None)
Quarter: 2010Q4

REPORT INFORMATION
  Report Type: 
  Country: None (occurrence: None)
  Receive Date: 20101224
  Receipt Date: 20101220
  Transmission Date: 20110411
  Serious: Yes (Death, Hospitalization)
  Sender: FDA-Public Use
  Company Number: PHHY2010AR86713

PATIENT
  Sex: Male

DRUGS (1)
  1. DIOVAN [Suspect]
     Dosage: 160 MG (1 TABLET PER DAY)
     Route: 048

REACTIONS (2)
  - CARDIO-RESPIRATORY ARREST [None]
  - EMOTIONAL DISTRESS [None]
